FAERS Safety Report 6388433-8 (Version None)
Quarter: 2009Q4

REPORT INFORMATION
  Report Type: 
  Country: None (occurrence: None)
  Receive Date: 20091001
  Receipt Date: 20091001
  Transmission Date: 20100525
  Serious: Yes (Other)
  Sender: FDA-Public Use
  Company Number: None

PATIENT
  Age: 45 Year
  Sex: Female
  Weight: 56.6996 kg

DRUGS (7)
  1. N-ACETYL CYSTEINE 600MG SOURCE NATURALS [Suspect]
     Indication: INFLUENZA IMMUNISATION
     Dosage: 600MG BID PO
     Route: 048
     Dates: start: 20090907, end: 20090926
  2. LEVOTHYROXINE SODIUM [Concomitant]
  3. RELPAX [Concomitant]
  4. IRON [Concomitant]
  5. ZINC [Concomitant]
  6. MULTI-VITAMIN [Concomitant]
  7. VIT C [Concomitant]

REACTIONS (1)
  - ARTHRALGIA [None]
